FAERS Safety Report 8517112-3 (Version None)
Quarter: 2012Q3

REPORT INFORMATION
  Report Type: 
  Country: None (occurrence: None)
  Receive Date: 20120718
  Receipt Date: 20120709
  Transmission Date: 20120928
  Serious: Yes (Death, Hospitalization)
  Sender: FDA-Public Use
  Company Number: US-BRISTOL-MYERS SQUIBB COMPANY-14513196

PATIENT
  Age: 62 Year
  Sex: Male

DRUGS (3)
  1. PREDNISONE [Concomitant]
     Dates: start: 20081223, end: 20090209
  2. TEMODAR [Concomitant]
     Dates: start: 20090117, end: 20090209
  3. IPILIMUMAB [Suspect]
     Indication: MALIGNANT MELANOMA
     Dosage: THERAPY INITIAL DOSE ON 01OCT2008. GIVEN 01OCT08-04DEC08.
     Route: 042
     Dates: start: 20081217, end: 20081217

REACTIONS (6)
  - ABDOMINAL DISTENSION [None]
  - ILEUS [None]
  - MALAISE [None]
  - SEPSIS [None]
  - DEHYDRATION [None]
  - GASTROINTESTINAL OBSTRUCTION [None]
